FAERS Safety Report 8945341 (Version 3)
Quarter: 2013Q1

REPORT INFORMATION
  Report Type: Spontaneous
  Country: GB (occurrence: GB)
  Receive Date: 20121205
  Receipt Date: 20130306
  Transmission Date: 20140127
  Serious: Yes (Life-Threatening, Hospitalization, Other)
  Sender: FDA-Public Use
  Company Number: PHFR2012GB005355

PATIENT
  Age: 33 Year
  Sex: Male

DRUGS (9)
  1. CLOZARIL [Suspect]
     Indication: SCHIZOPHRENIA
     Dosage: 350 MG, UNK
     Route: 048
     Dates: start: 20120906, end: 20121010
  2. HALOPERIDOL [Concomitant]
     Indication: PSYCHOTIC DISORDER
     Dosage: 10 MG, UNK
     Route: 048
  3. SODIUM VALPROATE [Concomitant]
     Indication: EPILEPSY
     Dosage: 400 MG, BID
     Route: 048
  4. BUSPIRONE [Concomitant]
     Indication: ANXIETY
     Dosage: 15 MG, UNK
     Route: 048
  5. AMITRIPTYLENE [Concomitant]
     Indication: PAIN
     Dosage: 75 G, UNK
     Route: 048
  6. DIAZEPAM [Concomitant]
     Indication: ANXIETY
     Dosage: 20 MG, UNK
     Route: 048
  7. GABAPENTIN [Concomitant]
     Dosage: 300 MG, UNK (FOUR TIMES A DAY)
     Route: 048
  8. ANTIPSYCHOTICS [Concomitant]
  9. ANXIOLYTICS [Concomitant]

REACTIONS (6)
  - Acute respiratory distress syndrome [Recovered/Resolved]
  - Bronchopneumonia [Recovered/Resolved]
  - Prostatic abscess [Not Recovered/Not Resolved]
  - Asthma [Unknown]
  - Epilepsy [Unknown]
  - Antipsychotic drug level increased [Unknown]
